FAERS Safety Report 4654648-X (Version None)
Quarter: 2005Q2

REPORT INFORMATION
  Report Type: 
  Country: None (occurrence: None)
  Receive Date: 20050504
  Receipt Date: 20050504
  Transmission Date: 20051028
  Serious: Yes (Other)
  Sender: FDA-Public Use
  Company Number: None

PATIENT
  Sex: Male
  Weight: 10.5 kg

DRUGS (2)
  1. CEPHALEXIN [Suspect]
     Indication: OTITIS MEDIA
     Dosage: ORAL
     Route: 048
     Dates: start: 20050429, end: 20050502
  2. CEPHALEXIN [Suspect]
     Indication: PHARYNGITIS
     Dosage: ORAL
     Route: 048
     Dates: start: 20050429, end: 20050502

REACTIONS (1)
  - RASH [None]
